FAERS Safety Report 12128027 (Version 1)
Quarter: 2016Q1

REPORT INFORMATION
  Report Type: Spontaneous
  Country: FR (occurrence: FR)
  Receive Date: 20160229
  Receipt Date: 20160229
  Transmission Date: 20160526
  Serious: Yes (Hospitalization)
  Sender: FDA-Public Use
  Company Number: FR-TEVA-636918ISR

PATIENT
  Age: 66 Year
  Sex: Female

DRUGS (3)
  1. DOXORUBICINE TEVA [Suspect]
     Active Substance: DOXORUBICIN
     Indication: LIPOSARCOMA
     Dosage: TOTAL DOSE: 84 MG.API-AI PROTOCOL (ADRIAMYCINE-CIS-PLATINUM, IFOSFAMIDE-ADRIAMYCINE, IFOSFAMIDE)
     Route: 042
     Dates: start: 20151208, end: 20151209
  2. CISPLATINE ACCORD [Suspect]
     Active Substance: CISPLATIN
     Indication: LIPOSARCOMA
     Route: 042
     Dates: start: 20151210, end: 20151210
  3. HOLOXAN [Suspect]
     Active Substance: IFOSFAMIDE
     Indication: LIPOSARCOMA
     Dosage: TOTAL DOSE: 4240 MG. API-AI PROTOCOL (ADRIAMYCINE-CIS-PLATINUM, IFOSFAMIDE-ADRIAMYCINE, IFOSFAMIDE)
     Route: 042
     Dates: start: 20151208, end: 20151208

REACTIONS (5)
  - Hypocalcaemia [Not Recovered/Not Resolved]
  - Diarrhoea [Unknown]
  - Hypomagnesaemia [Not Recovered/Not Resolved]
  - Renal failure [Recovered/Resolved]
  - Febrile neutropenia [Recovered/Resolved]

NARRATIVE: CASE EVENT DATE: 20151218
